FAERS Safety Report 5912171-6 (Version None)
Quarter: 2008Q4

REPORT INFORMATION
  Report Type: 
  Country: None (occurrence: None)
  Receive Date: 20081003
  Receipt Date: 20081003
  Transmission Date: 20090506
  Serious: Yes (Hospitalization)
  Sender: FDA-Public Use
  Company Number: None

PATIENT
  Sex: Male
  Weight: 81.3 kg

DRUGS (2)
  1. CYCLOPHOSPHAMIDE [Suspect]
     Indication: CHRONIC LYMPHOCYTIC LEUKAEMIA
     Dosage: DOSE REDUCED DAILY X3 Q 4WKS IV
     Route: 042
     Dates: start: 20070718, end: 20071213
  2. FLUDARABINE PHOSPHATE [Suspect]
     Indication: CHRONIC LYMPHOCYTIC LEUKAEMIA
     Dosage: DOSE REDUCED DAILY X3 Q 4WKS IV
     Route: 042
     Dates: start: 20070718, end: 20071213

REACTIONS (5)
  - COUGH [None]
  - DIARRHOEA [None]
  - FEBRILE NEUTROPENIA [None]
  - THROMBOCYTOPENIA [None]
  - VOMITING [None]
